FAERS Safety Report 8382438-3 (Version None)
Quarter: 2012Q2

REPORT INFORMATION
  Report Type: 
  Country: None (occurrence: None)
  Receive Date: 20120524
  Receipt Date: 20120521
  Transmission Date: 20120825
  Serious: Yes (Other)
  Sender: FDA-Public Use
  Company Number: PHHY2012NL028755

PATIENT
  Sex: Female
  Weight: 49 kg

DRUGS (1)
  1. ZOLEDRONOC ACID [Suspect]
     Indication: OSTEOPOROSIS
     Dosage: 5 MG, PER 364 DAYS
     Route: 042
     Dates: start: 20110408

REACTIONS (2)
  - SPINAL FRACTURE [None]
  - DRUG INEFFECTIVE [None]
